APPROVED DRUG PRODUCT: DIPHENHYDRAMINE HYDROCHLORIDE
Active Ingredient: DIPHENHYDRAMINE HYDROCHLORIDE
Strength: 12.5MG/5ML
Dosage Form/Route: SYRUP;ORAL
Application: A070497 | Product #001
Applicant: ALPHARMA US PHARMACEUTICALS DIVISION
Approved: Apr 25, 1989 | RLD: No | RS: No | Type: DISCN